FAERS Safety Report 24014057 (Version 5)
Quarter: 2024Q3

REPORT INFORMATION
  Report Type: Report from Study
  Country: PT (occurrence: PT)
  Receive Date: 20240626
  Receipt Date: 20240708
  Transmission Date: 20241017
  Serious: Yes (Hospitalization, Other)
  Sender: ABBVIE
  Company Number: PT-ABBVIE-5814371

PATIENT
  Age: 85 Year
  Sex: Female

DRUGS (28)
  1. CARBIDOPA\LEVODOPA [Suspect]
     Active Substance: CARBIDOPA\LEVODOPA
     Indication: Parkinson^s disease
     Dosage: 20 MG + 5 MG?FREQUENCY TEXT: MORN:12CC;MAINT:5.4CC/H;EXT:2CC
     Route: 050
     Dates: start: 20221027
  2. CARBIDOPA\LEVODOPA [Suspect]
     Active Substance: CARBIDOPA\LEVODOPA
     Dosage: 20 MG + 5 MG?FREQUENCY TEXT: MORN:15.5CC;MAINT:6.2CC/H;EXT:3CC
     Route: 050
     Dates: end: 20240620
  3. CARBIDOPA\LEVODOPA [Suspect]
     Active Substance: CARBIDOPA\LEVODOPA
     Dosage: 20 MG + 5 MG?FREQUENCY TEXT: MORN:13CC;MAINT:4.6CC/H;EXT:3CC
     Route: 050
     Dates: start: 20240620, end: 20240621
  4. CARBIDOPA\LEVODOPA [Suspect]
     Active Substance: CARBIDOPA\LEVODOPA
     Dosage: 20 MG + 5 MG?FREQUENCY TEXT: MORN:13.5CC;MAINT:5.6CC/H;EXT:3CC
     Route: 050
     Dates: start: 20240621, end: 20240622
  5. CARBIDOPA\LEVODOPA [Suspect]
     Active Substance: CARBIDOPA\LEVODOPA
     Dosage: 20 MG + 5 MG (PEG)?FREQUENCY TEXT: MORN:14.5CC;MAINT:6.4CC/H;EXT:3CC
     Route: 050
     Dates: start: 20240624, end: 20240625
  6. CARBIDOPA\LEVODOPA [Suspect]
     Active Substance: CARBIDOPA\LEVODOPA
     Dosage: 20 MG + 5 MG?FREQUENCY TEXT: MORN:13.5CC;MAINT:5.8CC/H;EXT:3CC
     Route: 050
     Dates: start: 20240622, end: 20240624
  7. CARBIDOPA\LEVODOPA [Suspect]
     Active Substance: CARBIDOPA\LEVODOPA
     Dosage: 20 MG + 5 MG (VIA PEG)?FREQUENCY TEXT: MORN:16CC;MAINT:6.4CC/H;EXT:5CC
     Route: 050
     Dates: start: 20240625, end: 20240626
  8. CARBIDOPA\LEVODOPA [Suspect]
     Active Substance: CARBIDOPA\LEVODOPA
     Dosage: 20 MG + 5 MG (VIA PEG), FREQUENCY TEXT: MORN:16CC;MAINT:6.4CC/H;EXT:3CC
     Route: 050
     Dates: start: 20240626
  9. BENSERAZIDE HYDROCHLORIDE\LEVODOPA [Concomitant]
     Active Substance: BENSERAZIDE HYDROCHLORIDE\LEVODOPA
     Indication: Product used for unknown indication
     Dosage: 100 MG + 25 MG?FREQUENCY TEXT: 2 TABLETS AT BEDTIME?START DATE TEXT: BEFORE DUODOPA
     Route: 048
  10. QUETIAPINE [Concomitant]
     Active Substance: QUETIAPINE
     Indication: Product used for unknown indication
     Dosage: 1 TABLET
     Route: 048
  11. QUETIAPINE [Concomitant]
     Active Substance: QUETIAPINE
     Indication: Product used for unknown indication
     Dosage: 1 TABLET?FORM STRENGTH: 25 MILLIGRAM?FREQUENCY TEXT: AT BEDTIME?START DATE TEXT: BEFORE DUODOPA
     Route: 048
  12. SERTRALINE [Concomitant]
     Active Substance: SERTRALINE HYDROCHLORIDE
     Indication: Product used for unknown indication
     Dosage: 1 TABLET
     Route: 048
  13. SERTRALINE [Concomitant]
     Active Substance: SERTRALINE HYDROCHLORIDE
     Indication: Product used for unknown indication
     Dosage: 1 TABLET?FORM STRENGTH: 50 MILLIGRAM?FREQUENCY TEXT: AT BREAKFAST?START DATE TEXT: BEFORE DUODOPA
     Route: 048
  14. DOMPERIDONE [Concomitant]
     Active Substance: DOMPERIDONE
     Indication: Product used for unknown indication
     Dosage: 2 TABLET
     Route: 048
  15. DOMPERIDONE [Concomitant]
     Active Substance: DOMPERIDONE
     Indication: Product used for unknown indication
     Dosage: 2 TABLET?FORM STRENGTH: 10 MILLIGRAM?FREQUENCY TEXT: AT FASTING AND AT LUNCH?START DATE TEXT: BEF...
     Route: 048
  16. MIRTAZAPINE [Concomitant]
     Active Substance: MIRTAZAPINE
     Indication: Product used for unknown indication
     Dosage: 1 TABLET
     Route: 048
  17. MIRTAZAPINE [Concomitant]
     Active Substance: MIRTAZAPINE
     Indication: Product used for unknown indication
     Dosage: 1 TABLET?FORM STRENGTH: 30 MILLIGRAM?FREQUENCY TEXT: AT BEDTIME?START DATE TEXT: BEFORE DUODOPA
     Route: 048
  18. ASPIRIN [Concomitant]
     Active Substance: ASPIRIN
     Indication: Product used for unknown indication
     Dosage: 1 TABLET
     Route: 048
  19. ASPIRIN [Concomitant]
     Active Substance: ASPIRIN
     Indication: Product used for unknown indication
     Dosage: 1 TABLET?FORM STRENGTH: 100 MILLIGRAM?FREQUENCY TEXT: AT LUNCH?START DATE TEXT: BEFORE DUODOPA
     Route: 048
  20. BISOPROLOL FUMARATE [Concomitant]
     Active Substance: BISOPROLOL FUMARATE
     Indication: Product used for unknown indication
     Dosage: 0.5 TABLET?FORM STRENGTH: 2.5 MILLIGRAM?FREQUENCY TEXT: AT FASTING?START DATE TEXT: BEFORE DUODOPA
     Route: 048
  21. RIVASTIGMINE [Concomitant]
     Active Substance: RIVASTIGMINE
     Indication: Product used for unknown indication
     Dosage: 1 TABLET
     Route: 048
  22. RIVASTIGMINE [Concomitant]
     Active Substance: RIVASTIGMINE
     Indication: Product used for unknown indication
     Dosage: 1 TABLET?FORM STRENGTH: 4.6 MILLIGRAM?FREQUENCY TEXT: AT BEDTIME?START DATE TEXT: BEFORE DUODOPA
     Route: 048
  23. Bekunis [Concomitant]
     Indication: Product used for unknown indication
     Dosage: 5 MG + 105 MG (BISACODYL + SENNA))?FREQUENCY TEXT: ONCE AT BEDTIME?START DATE TEXT: BEFORE DUODOPA
     Route: 048
  24. ATORVASTATIN [Concomitant]
     Active Substance: ATORVASTATIN
     Indication: Product used for unknown indication
     Dosage: 1 TABLET
     Route: 048
  25. ATORVASTATIN [Concomitant]
     Active Substance: ATORVASTATIN
     Indication: Product used for unknown indication
     Dosage: 1 TABLET?FORM STRENGTH: 20 MILLIGRAM?FREQUENCY TEXT: AT BEDTIME?START DATE TEXT: BEFORE DUODOPA
     Route: 048
  26. PANTOPRAZOLE [Concomitant]
     Active Substance: PANTOPRAZOLE
     Indication: Product used for unknown indication
     Dosage: 1 TABLET
     Route: 048
  27. PANTOPRAZOLE [Concomitant]
     Active Substance: PANTOPRAZOLE
     Indication: Product used for unknown indication
     Dosage: 1 TABLET?FORM STRENGTH: 20 MILLIGRAM?FREQUENCY TEXT: AT FASTING?START DATE TEXT: BEFORE DUODOPA
     Route: 048
  28. LACTULOSE [Concomitant]
     Active Substance: LACTULOSE
     Indication: Product used for unknown indication
     Dosage: FREQUENCY TEXT: 1 TABLESPOON IN SOS?START DATE TEXT: BEFORE DUODOPA
     Route: 048

REACTIONS (9)
  - Incarcerated hernia [Recovered/Resolved]
  - On and off phenomenon [Not Recovered/Not Resolved]
  - Groin pain [Recovered/Resolved]
  - Gastrointestinal necrosis [Recovered/Resolved]
  - Fatigue [Not Recovered/Not Resolved]
  - Communication disorder [Not Recovered/Not Resolved]
  - Dyskinesia [Unknown]
  - Altered state of consciousness [Not Recovered/Not Resolved]
  - General physical health deterioration [Not Recovered/Not Resolved]

NARRATIVE: CASE EVENT DATE: 20240601
